FAERS Safety Report 6313944-0 (Version None)
Quarter: 2009Q3

REPORT INFORMATION
  Report Type: 
  Country: None (occurrence: None)
  Receive Date: 20090818
  Receipt Date: 20090806
  Transmission Date: 20100115
  Serious: Yes (Hospitalization)
  Sender: FDA-Public Use
  Company Number: PHHY2009AU27392

PATIENT
  Sex: Female

DRUGS (2)
  1. CLOZARIL [Suspect]
     Dosage: 300 MG, UNK
     Route: 048
     Dates: start: 20090525, end: 20090701
  2. VALPROATE SODIUM [Concomitant]
     Dosage: 1000 MG, BID
     Dates: end: 20090710

REACTIONS (6)
  - BLOOD ALKALINE PHOSPHATASE INCREASED [None]
  - C-REACTIVE PROTEIN INCREASED [None]
  - CHEST PAIN [None]
  - PALPITATIONS [None]
  - TROPONIN INCREASED [None]
  - VIRAL INFECTION [None]
